FAERS Safety Report 22062965 (Version 8)
Quarter: 2024Q4

REPORT INFORMATION
  Report Type: Report from Study
  Country: CA (occurrence: CA)
  Receive Date: 20230306
  Receipt Date: 20241014
  Transmission Date: 20250115
  Serious: No
  Sender: ROCHE
  Company Number: CA-ROCHE-3297638

PATIENT
  Age: 59 Year
  Sex: Female

DRUGS (3)
  1. OCREVUS [Suspect]
     Active Substance: OCRELIZUMAB
     Indication: Relapsing-remitting multiple sclerosis
     Dosage: 300 MG AT DAY 0 AND 14, THEN 600 MG EVERY 6 MONTH
     Route: 042
     Dates: start: 20180416
  2. CYMBALTA [Concomitant]
     Active Substance: DULOXETINE HYDROCHLORIDE
  3. VESICARE [Concomitant]
     Active Substance: SOLIFENACIN SUCCINATE

REACTIONS (7)
  - Nasopharyngitis [Recovering/Resolving]
  - COVID-19 [Recovered/Resolved]
  - Acoustic neuroma [Unknown]
  - Fatigue [Unknown]
  - Back pain [Unknown]
  - Vertigo [Unknown]
  - Sinusitis [Unknown]

NARRATIVE: CASE EVENT DATE: 20220626
